FAERS Safety Report 6362900-5 (Version None)
Quarter: 2009Q3

REPORT INFORMATION
  Report Type: 
  Country: None (occurrence: None)
  Receive Date: 20090919
  Receipt Date: 20090611
  Transmission Date: 20100115
  Serious: No
  Sender: FDA-Public Use
  Company Number: US-ABBOTT-09P-163-0579570-00

PATIENT
  Sex: Female
  Weight: 90.8 kg

DRUGS (5)
  1. HUMIRA [Suspect]
     Indication: PSORIATIC ARTHROPATHY
     Route: 058
     Dates: start: 20080101, end: 20080101
  2. HYDROCODONE BITARTRATE AND ACETAMINOPHEN [Concomitant]
     Indication: ARTHRALGIA
     Dosage: 7.5/500, 4 IN 1 DAYS
     Route: 048
  3. PAROXETINE HCL [Concomitant]
     Indication: ANXIETY
     Route: 048
  4. PAROXETINE HCL [Concomitant]
     Indication: DEPRESSION
  5. SABELLA [Concomitant]
     Indication: FIBROMYALGIA
     Dosage: 1 IN 1 DAYS, TITRATE UP
     Route: 048
     Dates: start: 20090610

REACTIONS (3)
  - INFLUENZA [None]
  - PSORIATIC ARTHROPATHY [None]
  - TREATMENT NONCOMPLIANCE [None]
